FAERS Safety Report 7409094-2 (Version None)
Quarter: 2011Q2

REPORT INFORMATION
  Report Type: 
  Country: None (occurrence: None)
  Receive Date: 20110412
  Receipt Date: 20110406
  Transmission Date: 20111010
  Serious: Yes (Other)
  Sender: FDA-Public Use
  Company Number: US-ROCHE-452338

PATIENT
  Sex: Male
  Weight: 77.1 kg

DRUGS (1)
  1. ACCUTANE [Suspect]
     Indication: ACNE
     Dosage: THERAPY WITH ISOTRETINOIN FOR FOUR TO FIVE MONTHS.
     Route: 048
     Dates: start: 19910101

REACTIONS (12)
  - INFLAMMATORY BOWEL DISEASE [None]
  - IRRITABLE BOWEL SYNDROME [None]
  - COLITIS ULCERATIVE [None]
  - GASTROINTESTINAL INJURY [None]
  - INTESTINAL POLYP [None]
  - INTESTINAL HAEMORRHAGE [None]
  - PROCTITIS [None]
  - COLITIS [None]
  - ARTHRALGIA [None]
  - PROCTITIS ULCERATIVE [None]
  - HAEMORRHOIDS [None]
  - ANAL FISSURE [None]
